FAERS Safety Report 4270699-1 (Version None)
Quarter: 2004Q1

REPORT INFORMATION
  Report Type: 
  Country: None (occurrence: None)
  Receive Date: 20040113
  Receipt Date: 20040113
  Transmission Date: 20041129
  Serious: Yes (Death, Life-Threatening, Hospitalization)
  Sender: FDA-Public Use
  Company Number: None

PATIENT
  Age: 84 Year
  Sex: Female
  Weight: 67.9 kg

DRUGS (14)
  1. LOVENOX [Suspect]
     Dosage: 66 MG SQ Q 12 HOURS
     Route: 058
     Dates: start: 20030623, end: 20030707
  2. LANOXIN [Concomitant]
  3. CARDIZEM [Concomitant]
  4. PROCRIT [Concomitant]
  5. BETAPACE [Concomitant]
  6. CATAPRES [Concomitant]
  7. JET NEBS [Concomitant]
  8. LEVAQUIN [Concomitant]
  9. ROBITUSSIN SYRUP [Concomitant]
  10. PROTONIX [Concomitant]
  11. CORDARONE [Concomitant]
  12. ZITHROMAX [Concomitant]
  13. GENTAMICIN [Concomitant]
  14. VANC [Concomitant]

REACTIONS (9)
  - ARTERIAL DISORDER [None]
  - BRADYCARDIA [None]
  - CARDIO-RESPIRATORY ARREST [None]
  - DIALYSIS [None]
  - HAEMATOMA [None]
  - HAEMOGLOBIN DECREASED [None]
  - HAEMORRHAGE [None]
  - HYPOTENSION [None]
  - VASCULAR PSEUDOANEURYSM [None]
